FAERS Safety Report 8469335-X (Version None)
Quarter: 2012Q2

REPORT INFORMATION
  Report Type: 
  Country: None (occurrence: None)
  Receive Date: 20120626
  Receipt Date: 20120615
  Transmission Date: 20120825
  Serious: Yes (Other)
  Sender: FDA-Public Use
  Company Number: MA-BRISTOL-MYERS SQUIBB COMPANY-16696643

PATIENT

DRUGS (1)
  1. FUNGIZONE [Suspect]
     Indication: ZYGOMYCOSIS
     Route: 042

REACTIONS (1)
  - ZYGOMYCOSIS [None]
